FAERS Safety Report 7822328-5 (Version None)
Quarter: 2011Q4

REPORT INFORMATION
  Report Type: 
  Country: None (occurrence: None)
  Receive Date: 20111018
  Receipt Date: 20101220
  Transmission Date: 20120403
  Serious: No
  Sender: FDA-Public Use
  Company Number: US-ASTRAZENECA-2010SE54973

PATIENT
  Age: 70 Year
  Sex: Male
  Weight: 97.1 kg

DRUGS (2)
  1. SYMBICORT [Suspect]
     Dosage: 160/4.5 MCG AS REQUIRED
     Route: 055
     Dates: start: 20101026, end: 20101116
  2. SYMBICORT [Suspect]
     Dosage: 160/4.5 MCG TWO PUFFS BID
     Route: 055
     Dates: start: 20101023, end: 20101116

REACTIONS (2)
  - LIP SWELLING [None]
  - OEDEMA MOUTH [None]
